FAERS Safety Report 6023050-0 (Version None)
Quarter: 2008Q4

REPORT INFORMATION
  Report Type: 
  Country: None (occurrence: None)
  Receive Date: 20081230
  Receipt Date: 20081119
  Transmission Date: 20090506
  Serious: No
  Sender: FDA-Public Use
  Company Number: US-ABBOTT-08P-163-0488559-00

PATIENT
  Sex: Female

DRUGS (2)
  1. CEFDINIR SUSPENSION 250MG/5ML [Suspect]
     Indication: SINUSITIS
     Route: 048
     Dates: start: 20081115
  2. AUGMENTIN [Concomitant]
     Indication: SINUSITIS
     Dates: end: 20081113

REACTIONS (1)
  - INCORRECT DOSE ADMINISTERED [None]
